FAERS Safety Report 4816631-0 (Version None)
Quarter: 2005Q4

REPORT INFORMATION
  Report Type: 
  Country: None (occurrence: None)
  Receive Date: 20051031
  Receipt Date: 20051031
  Transmission Date: 20060501
  Serious: Yes (Hospitalization, Other)
  Sender: FDA-Public Use
  Company Number: None

PATIENT
  Sex: Female
  Weight: 88.8 kg

DRUGS (2)
  1. CYTARABINE [Suspect]
     Indication: ACUTE MYELOID LEUKAEMIA
     Dosage: SEE IMAGE
     Dates: start: 20050928, end: 20051004
  2. GM-CSF [Suspect]
     Dosage: SEE IMAGE
     Dates: start: 20050928, end: 20051018

REACTIONS (8)
  - BACTERAEMIA [None]
  - BACTERIAL INFECTION [None]
  - BLOOD CULTURE POSITIVE [None]
  - CATHETER RELATED INFECTION [None]
  - LUNG INFILTRATION [None]
  - NEUTROPENIA [None]
  - PYREXIA [None]
  - STAPHYLOCOCCAL INFECTION [None]
